FAERS Safety Report 9753510 (Version 2)
Quarter: 2013Q4

REPORT INFORMATION
  Report Type: Spontaneous
  Country: US (occurrence: US)
  Receive Date: 20131213
  Receipt Date: 20131216
  Transmission Date: 20140711
  Serious: No
  Sender: FDA-Public Use
  Company Number: US-TEVA-404761USA

PATIENT
  Age: 23 Year
  Sex: Female
  Weight: 84.44 kg

DRUGS (2)
  1. PARAGARD 380A [Suspect]
     Indication: CONTRACEPTION
     Route: 015
     Dates: start: 20121025, end: 20130509
  2. ADDERALL [Concomitant]
     Dosage: 20 MILLIGRAM DAILY;
     Route: 048

REACTIONS (3)
  - Device expulsion [Recovered/Resolved]
  - Pelvic pain [Unknown]
  - Muscle spasms [Recovered/Resolved]
